FAERS Safety Report 9245445 (Version 1)
Quarter: 2013Q2

REPORT INFORMATION
  Report Type: Spontaneous
  Country: US (occurrence: US)
  Receive Date: 20130422
  Receipt Date: 20130422
  Transmission Date: 20140414
  Serious: Yes (Other)
  Sender: FDA-Public Use
  Company Number: US-ASTELLAS-2013US002039

PATIENT
  Age: 68 Year
  Sex: Male

DRUGS (1)
  1. LEXISCAN [Suspect]
     Indication: PRODUCT USED FOR UNKNOWN INDICATION
     Dosage: 400 UG, TOTAL DOSE
     Route: 042
     Dates: start: 20130218, end: 20130218

REACTIONS (3)
  - Hypotension [Unknown]
  - Heart rate abnormal [Unknown]
  - Hyperhidrosis [Unknown]
